FAERS Safety Report 9932197 (Version 1)
Quarter: 2014Q1

REPORT INFORMATION
  Report Type: Spontaneous
  Country: US (occurrence: US)
  Receive Date: 20140228
  Receipt Date: 20140228
  Transmission Date: 20141002
  Serious: No
  Sender: FDA-Public Use
  Company Number: US-ABBVIE-13P-163-1104604-00

PATIENT
  Age: 34 Year
  Sex: Male
  Weight: 111.23 kg

DRUGS (1)
  1. ANDROGEL [Suspect]
     Indication: BLOOD TESTOSTERONE DECREASED
     Dosage: PUMP
     Dates: start: 201305

REACTIONS (2)
  - Sinusitis [Recovering/Resolving]
  - Headache [Recovered/Resolved]
